FAERS Safety Report 20757352 (Version 3)
Quarter: 2022Q3

REPORT INFORMATION
  Report Type: Spontaneous
  Country: JP (occurrence: JP)
  Receive Date: 20220427
  Receipt Date: 20220803
  Transmission Date: 20221027
  Serious: Yes (Hospitalization)
  Sender: FDA-Public Use
  Company Number: JP-Eisai-202106028_LEN_P_1

PATIENT

DRUGS (1)
  1. LENVIMA [Suspect]
     Active Substance: LENVATINIB
     Indication: Anaplastic thyroid cancer
     Route: 048
     Dates: end: 20210324

REACTIONS (2)
  - Pulmonary toxicity [Not Recovered/Not Resolved]
  - Radiation pneumonitis [Unknown]

NARRATIVE: CASE EVENT DATE: 20210322
